FAERS Safety Report 24836528 (Version 1)
Quarter: 2025Q1

REPORT INFORMATION
  Report Type: Spontaneous
  Country: KR (occurrence: KR)
  Receive Date: 20250113
  Receipt Date: 20250113
  Transmission Date: 20250409
  Serious: Yes (Hospitalization)
  Sender: ORGANON
  Company Number: KR-ORGANON-O2501KOR000732

PATIENT
  Age: 64 Year
  Sex: Male

DRUGS (8)
  1. ATORVASTATIN CALCIUM\EZETIMIBE [Suspect]
     Active Substance: ATORVASTATIN CALCIUM\EZETIMIBE
     Route: 048
  2. TRIMETAZIDINE DIHYDROCHLORIDE [Concomitant]
     Active Substance: TRIMETAZIDINE DIHYDROCHLORIDE
     Indication: Angina pectoris
     Dosage: 35 MILLIGRAM, BID (0.5 DAY)
     Route: 048
     Dates: start: 20090923
  3. ISOSORBIDE MONONITRATE [Concomitant]
     Active Substance: ISOSORBIDE MONONITRATE
     Indication: Angina pectoris
     Dosage: 60 MILLIGRAM, QD
     Route: 048
     Dates: start: 20161109
  4. CLOPIDOGREL BISULFATE [Concomitant]
     Active Substance: CLOPIDOGREL BISULFATE
     Indication: Acute myocardial infarction
     Route: 048
     Dates: start: 20160713
  5. CILOSTAZOL [Concomitant]
     Active Substance: CILOSTAZOL
     Indication: Acute myocardial infarction
     Dosage: 100 MILLIGRAM, QD (FORMULATION: UNCOATED TABLET)
     Route: 048
     Dates: start: 20151102
  6. FUROSEMIDE [Concomitant]
     Active Substance: FUROSEMIDE
     Route: 048
     Dates: start: 20161109
  7. SPIRONOLACTONE [Concomitant]
     Active Substance: SPIRONOLACTONE
     Dosage: 25 MILLIGRAM, QD
     Route: 048
     Dates: start: 20161109
  8. CARVEDILOL [Concomitant]
     Active Substance: CARVEDILOL
     Dosage: 6.25 MILLIGRAM, BID (FORMULATION: UNCOATED TABLET)
     Route: 048
     Dates: start: 20090722

REACTIONS (6)
  - Orthostatic hypotension [Recovered/Resolved]
  - Intracranial aneurysm [Recovered/Resolved]
  - Cerebral artery occlusion [Recovered/Resolved]
  - Cerebral infarction [Recovered/Resolved]
  - Loss of consciousness [Recovered/Resolved]
  - Loss of consciousness [Recovered/Resolved]

NARRATIVE: CASE EVENT DATE: 20170308
